FAERS Safety Report 18563318 (Version 2)
Quarter: 2020Q4

REPORT INFORMATION
  Report Type: Report from Study
  Country: US (occurrence: US)
  Receive Date: 20201201
  Receipt Date: 20201217
  Transmission Date: 20210114
  Serious: Yes (Hospitalization)
  Sender: FDA-Public Use
  Company Number: US-BIOVITRUM-2020US6511

PATIENT
  Age: 1 Year
  Sex: Male

DRUGS (3)
  1. KINERET [Suspect]
     Active Substance: ANAKINRA
     Indication: PYREXIA
     Route: 058
     Dates: start: 20201030
  2. KINERET [Suspect]
     Active Substance: ANAKINRA
     Indication: CRYOPYRIN ASSOCIATED PERIODIC SYNDROME
     Route: 058
     Dates: start: 20201029
  3. KINERET [Suspect]
     Active Substance: ANAKINRA
     Indication: JUVENILE IDIOPATHIC ARTHRITIS

REACTIONS (10)
  - Pyrexia [Unknown]
  - Injection site mass [Unknown]
  - Off label use [Not Recovered/Not Resolved]
  - Decreased activity [Unknown]
  - Condition aggravated [Unknown]
  - Infection [Unknown]
  - Epistaxis [Unknown]
  - Arthropod bite [Unknown]
  - Injection site bruising [Unknown]
  - Mydriasis [Unknown]

NARRATIVE: CASE EVENT DATE: 20201030
